FAERS Safety Report 9199425 (Version 2)
Quarter: 2013Q2

REPORT INFORMATION
  Report Type: Spontaneous
  Country: US (occurrence: US)
  Receive Date: 20130329
  Receipt Date: 20130514
  Transmission Date: 20140414
  Serious: No
  Sender: FDA-Public Use
  Company Number: US-PFIZER INC-2012214493

PATIENT
  Age: 63 Year
  Sex: Female
  Weight: 74.83 kg

DRUGS (3)
  1. CHANTIX [Suspect]
     Indication: SMOKING CESSATION THERAPY
     Dosage: 1 MG, 2X/DAY
     Route: 048
     Dates: start: 20130318
  2. ASPIRIN [Concomitant]
     Indication: CARDIAC DISORDER
     Dosage: UNK, DAILY
  3. CALCIUM [Concomitant]
     Indication: BONE DISORDER
     Dosage: 600 MG, 2X/DAY

REACTIONS (1)
  - Flatulence [Not Recovered/Not Resolved]
